FAERS Safety Report 11592170 (Version 1)
Quarter: 2015Q4

REPORT INFORMATION
  Report Type: Spontaneous
  Country: GB (occurrence: GB)
  Receive Date: 20151005
  Receipt Date: 20151005
  Transmission Date: 20160304
  Serious: Yes (Other)
  Sender: FDA-Public Use
  Company Number: GB-JNJFOC-20150918911

PATIENT
  Age: 73 Year
  Sex: Female
  Weight: 68.03 kg

DRUGS (4)
  1. PSEUDOEPHEDRINE HYDROCHLORIDE. [Suspect]
     Active Substance: PSEUDOEPHEDRINE HYDROCHLORIDE
     Indication: TINNITUS
     Dosage: DOSE 60 (UNITS NOT REPORTED)
     Route: 048
     Dates: start: 20150907, end: 20150911
  2. PSEUDOEPHEDRINE HYDROCHLORIDE. [Suspect]
     Active Substance: PSEUDOEPHEDRINE HYDROCHLORIDE
     Route: 048
  3. PARACETAMOL [Concomitant]
     Active Substance: ACETAMINOPHEN
     Route: 065
  4. NAPROXEN. [Concomitant]
     Active Substance: NAPROXEN
     Route: 065

REACTIONS (8)
  - Peripheral coldness [Recovered/Resolved]
  - Dry mouth [Recovering/Resolving]
  - Headache [Recovered/Resolved]
  - Product use issue [Recovered/Resolved]
  - Insomnia [Recovering/Resolving]
  - Malaise [Recovering/Resolving]
  - Tremor [Recovering/Resolving]
  - Cyanosis [Recovered/Resolved]

NARRATIVE: CASE EVENT DATE: 20150907
